FAERS Safety Report 11239165 (Version 1)
Quarter: 2015Q3

REPORT INFORMATION
  Report Type: Spontaneous
  Country: US (occurrence: None)
  Receive Date: 20150701
  Receipt Date: 20150701
  Transmission Date: 20151125
  Serious: Yes (Death, Life-Threatening)
  Sender: FDA-Public Use
  Company Number: None

PATIENT
  Age: 71 Year
  Sex: Male
  Weight: 51.5 kg

DRUGS (1)
  1. HEPARIN [Suspect]
     Active Substance: HEPARIN SODIUM
     Indication: THROMBOCYTOPENIA
     Dates: start: 20141018, end: 20141102

REACTIONS (2)
  - Deep vein thrombosis [None]
  - Thrombocytopenia [None]

NARRATIVE: CASE EVENT DATE: 20141102
